FAERS Safety Report 23709661 (Version 5)
Quarter: 2025Q4

REPORT INFORMATION
  Report Type: Spontaneous
  Country: US (occurrence: US)
  Receive Date: 20240404
  Receipt Date: 20251008
  Transmission Date: 20260117
  Serious: Yes (Other)
  Sender: BRISTOL-MYERS SQUIBB COMPANY
  Company Number: US-BRISTOL-MYERS SQUIBB COMPANY-2024-053901

PATIENT
  Age: 75 Year
  Sex: Male
  Weight: 78.02 kg

DRUGS (17)
  1. REVLIMID [Suspect]
     Active Substance: LENALIDOMIDE
     Indication: Plasma cell myeloma
     Dates: start: 20240115
  2. REVLIMID [Suspect]
     Active Substance: LENALIDOMIDE
     Dosage: 2WKSON,1WKOFF
     Dates: start: 20240101
  3. REVLIMID [Suspect]
     Active Substance: LENALIDOMIDE
  4. DECADRON [Suspect]
     Active Substance: DEXAMETHASONE
     Indication: Plasma cell myeloma
     Dates: start: 20240115
  5. TOLODODEKIN ALFA [Suspect]
     Active Substance: TOLODODEKIN ALFA
     Indication: Plasma cell myeloma
  6. VELCADE [Suspect]
     Active Substance: BORTEZOMIB
     Indication: Plasma cell myeloma
  7. OXYCODONE [Suspect]
     Active Substance: OXYCODONE
     Indication: Pain
     Dosage: ONCE OR TWICE IN A DAY/  2 TO 3 TABLETS EVERY 4 HOURS AS NEEDED
  8. ACYCLOVIR [Concomitant]
     Active Substance: ACYCLOVIR
     Indication: Prophylaxis
  9. ASPIRIN [Concomitant]
     Active Substance: ASPIRIN
     Indication: Thrombosis prophylaxis
  10. PREDNISONE [Concomitant]
     Active Substance: PREDNISONE
     Indication: Product used for unknown indication
  11. PREDNISONE [Concomitant]
     Active Substance: PREDNISONE
  12. MS CONTIN [Concomitant]
     Active Substance: MORPHINE SULFATE
     Indication: Pain
     Dosage: MS CONTIN EXTENDED RELEASE
  13. VITAMINS NOS [Concomitant]
     Active Substance: VITAMINS
     Indication: Anaemia
  14. IMODIUM [Concomitant]
     Active Substance: LOPERAMIDE HYDROCHLORIDE
     Indication: Diarrhoea
  15. METOPROLOL [Concomitant]
     Active Substance: METOPROLOL
     Indication: Product used for unknown indication
     Dosage: DECREASED HIS DOSE OF METOPROLOL DOWN TO A HALF A TABLET A DAY.
  16. METOPROLOL [Concomitant]
     Active Substance: METOPROLOL
  17. CYCLOBENZAPRINE [Concomitant]
     Active Substance: CYCLOBENZAPRINE
     Indication: Product used for unknown indication

REACTIONS (42)
  - Product availability issue [Unknown]
  - Vision blurred [Unknown]
  - Dry eye [Unknown]
  - Asthenia [Unknown]
  - Dizziness [Unknown]
  - Dehydration [Unknown]
  - Orthostatic hypotension [Unknown]
  - Diarrhoea [Recovered/Resolved]
  - Feeling jittery [Unknown]
  - Nervousness [Unknown]
  - Hypophagia [Unknown]
  - Decreased appetite [Unknown]
  - Lacrimation increased [Unknown]
  - Neuropathy peripheral [Not Recovered/Not Resolved]
  - Gastrointestinal disorder [Not Recovered/Not Resolved]
  - Fatigue [Unknown]
  - Headache [Unknown]
  - Neck pain [Recovered/Resolved]
  - Off label use [Unknown]
  - Musculoskeletal stiffness [Not Recovered/Not Resolved]
  - Lethargy [Unknown]
  - Pain [Not Recovered/Not Resolved]
  - Pain in extremity [Recovering/Resolving]
  - Night sweats [Recovered/Resolved]
  - Visual impairment [Unknown]
  - Hordeolum [Unknown]
  - Tooth disorder [Unknown]
  - Cataract [Unknown]
  - Hyperbilirubinaemia [Recovered/Resolved]
  - Back pain [Unknown]
  - Hepatic function abnormal [Recovered/Resolved]
  - Product supply issue [Unknown]
  - Myalgia [Unknown]
  - Arthralgia [Unknown]
  - Musculoskeletal chest pain [Unknown]
  - Blood iron decreased [Unknown]
  - Rheumatoid arthritis [Unknown]
  - Musculoskeletal pain [Recovering/Resolving]
  - Metastases to bone [Unknown]
  - Anxiety [Unknown]
  - Chronic obstructive pulmonary disease [Unknown]
  - Emphysema [Unknown]

NARRATIVE: CASE EVENT DATE: 20240101
